FAERS Safety Report 25877108 (Version 2)
Quarter: 2025Q4

REPORT INFORMATION
  Report Type: Spontaneous
  Country: EU (occurrence: EU)
  Receive Date: 20251003
  Receipt Date: 20251206
  Transmission Date: 20260117
  Serious: Yes (Hospitalization, Other)
  Sender: AUROBINDO
  Company Number: EU-AEMPS-1754380

PATIENT
  Age: 77 Year
  Sex: Female

DRUGS (5)
  1. PREGABALIN [Suspect]
     Active Substance: PREGABALIN
     Indication: Glossopharyngeal neuralgia
     Dosage: 25 MILLIGRAM
     Dates: start: 20250703, end: 20250814
  2. DULOXETINE [Suspect]
     Active Substance: DULOXETINE
     Indication: Glossopharyngeal neuralgia
     Dosage: 30 MILLIGRAM, ONCE A DAY
     Dates: start: 20250723, end: 20250804
  3. DULOXETINE [Suspect]
     Active Substance: DULOXETINE
     Dosage: 60 MILLIGRAM
     Dates: start: 20250811, end: 20250813
  4. CARBAMAZEPINE [Suspect]
     Active Substance: CARBAMAZEPINE
     Indication: Glossopharyngeal neuralgia
     Dosage: 200 MILLIGRAM, ONCE A DAY
     Dates: start: 20250709, end: 20250809
  5. METAMIZOL SODIUM [Suspect]
     Active Substance: METAMIZOL SODIUM
     Indication: Glossopharyngeal neuralgia
     Dosage: 575 MILLIGRAM, 3 TIMES A DAY
     Dates: start: 20250716, end: 20250808

REACTIONS (4)
  - Drug reaction with eosinophilia and systemic symptoms [Recovered/Resolved]
  - Hypertransaminasaemia [Recovered/Resolved]
  - Eosinophilia [Recovered/Resolved]
  - Lymphocytosis [Recovered/Resolved]

NARRATIVE: CASE EVENT DATE: 20250803
